FAERS Safety Report 7926359-6 (Version None)
Quarter: 2011Q4

REPORT INFORMATION
  Report Type: 
  Country: None (occurrence: None)
  Receive Date: 20111118
  Receipt Date: 20111110
  Transmission Date: 20120403
  Serious: No
  Sender: FDA-Public Use
  Company Number: US-BIOGENIDEC-2011BI041673

PATIENT
  Age: 38 Year
  Sex: Male

DRUGS (1)
  1. TYSABRI [Suspect]
     Indication: MULTIPLE SCLEROSIS
     Route: 042
     Dates: start: 20090615, end: 20110823

REACTIONS (5)
  - SKIN WARM [None]
  - SKIN INFECTION [None]
  - INFECTION [None]
  - NASOPHARYNGITIS [None]
  - RASH MACULAR [None]
